FAERS Safety Report 11132793 (Version 1)
Quarter: 2015Q2

REPORT INFORMATION
  Report Type: Spontaneous
  Country: US (occurrence: None)
  Receive Date: 20150521
  Receipt Date: 20150521
  Transmission Date: 20150821
  Serious: Yes (Disabling)
  Sender: FDA-Public Use
  Company Number: None

PATIENT
  Age: 49 Year
  Sex: Female

DRUGS (1)
  1. ESTRADIOL. [Suspect]
     Active Substance: ESTRADIOL
     Indication: HORMONE REPLACEMENT THERAPY
     Route: 061
     Dates: start: 20150121, end: 20150418

REACTIONS (6)
  - Application site rash [None]
  - Rash [None]
  - Pruritus generalised [None]
  - Ear swelling [None]
  - Swelling [None]
  - No therapeutic response [None]

NARRATIVE: CASE EVENT DATE: 20150416
